FAERS Safety Report 8941948 (Version 1)
Quarter: 2012Q4

REPORT INFORMATION
  Report Type: Report from Study
  Country: CA (occurrence: CA)
  Receive Date: 20121203
  Receipt Date: 20121203
  Transmission Date: 20130627
  Serious: Yes (Life-Threatening)
  Sender: FDA-Public Use
  Company Number: CA-JNJFOC-20121113078

PATIENT
  Age: 74 Year
  Sex: Male
  Weight: 82 kg

DRUGS (4)
  1. REMICADE [Suspect]
     Indication: CROHN^S DISEASE
     Route: 042
     Dates: start: 20080904
  2. REMICADE [Suspect]
     Indication: CROHN^S DISEASE
     Dosage: 27th infusion
     Route: 042
     Dates: start: 20121121
  3. BENADRYL [Concomitant]
     Dosage: 1000 (units unspecified)
     Route: 042
  4. TYLENOL [Concomitant]
     Dosage: 1003 (units unspecified)
     Route: 048

REACTIONS (7)
  - Diarrhoea [Unknown]
  - Infusion related reaction [Unknown]
  - Dyspnoea [Unknown]
  - Nausea [Recovered/Resolved]
  - Vomiting [Unknown]
  - Dizziness [Unknown]
  - Abdominal pain [Unknown]
